FAERS Safety Report 11451749 (Version 1)
Quarter: 2015Q3

REPORT INFORMATION
  Report Type: Spontaneous
  Country: US (occurrence: None)
  Receive Date: 20150902
  Receipt Date: 20150902
  Transmission Date: 20151125
  Serious: No
  Sender: FDA-Public Use
  Company Number: None

PATIENT
  Age: 73 Year
  Sex: Female
  Weight: 57.15 kg

DRUGS (4)
  1. PREDNISONE. [Suspect]
     Active Substance: PREDNISONE
     Indication: MUSCULOSKELETAL STIFFNESS
     Dosage: TAKEN BY MOUTH
     Dates: start: 20150617
  2. ULTIMATE OMEGA [Concomitant]
  3. WOMEN^S ULTRA MEGA BONE DENSITY [Concomitant]
  4. LYSINE [Concomitant]
     Active Substance: LYSINE

REACTIONS (1)
  - Pollakiuria [None]

NARRATIVE: CASE EVENT DATE: 20150714
